FAERS Safety Report 9099003 (Version 2)
Quarter: 2013Q1

REPORT INFORMATION
  Report Type: Spontaneous
  Country: JP (occurrence: JP)
  Receive Date: 20130213
  Receipt Date: 20130315
  Transmission Date: 20140127
  Serious: Yes (Other)
  Sender: FDA-Public Use
  Company Number: JP-ASTELLAS-2013JP001362

PATIENT
  Age: 47 Year
  Sex: Male
  Weight: 76.5 kg

DRUGS (6)
  1. FUNGUARD [Suspect]
     Indication: ORBITAL APEX SYNDROME
     Dosage: 300 MG, UID/QD
     Route: 041
     Dates: start: 20061215, end: 20061228
  2. FUNGUARD [Suspect]
     Indication: FUNGAL INFECTION
     Dosage: 150 MG, UID/QD
     Route: 041
     Dates: start: 20061229, end: 20070117
  3. GLYCYRON                           /00466401/ [Concomitant]
     Indication: HEPATIC STEATOSIS
     Dosage: 1 DF, TID
     Route: 048
     Dates: start: 20061215, end: 20070104
  4. GLYCYRON                           /00466401/ [Concomitant]
     Dosage: 2 DF, TID
     Route: 048
     Dates: start: 20070105
  5. ITRIZOLE [Concomitant]
     Indication: ORBITAL APEX SYNDROME
     Dosage: 200 MG, BID
     Route: 048
     Dates: start: 20061225
  6. ITRIZOLE [Concomitant]
     Indication: FUNGAL INFECTION

REACTIONS (4)
  - Drug ineffective [Unknown]
  - Orbital apex syndrome [Recovering/Resolving]
  - Fungal infection [Recovering/Resolving]
  - Renal impairment [Recovered/Resolved]
